FAERS Safety Report 8556662-0 (Version None)
Quarter: 2012Q3

REPORT INFORMATION
  Report Type: 
  Country: None (occurrence: None)
  Receive Date: 20120801
  Receipt Date: 20120723
  Transmission Date: 20120928
  Serious: Yes (Hospitalization)
  Sender: FDA-Public Use
  Company Number: US-BAYER-2012-012255

PATIENT
  Age: 28 Year
  Sex: Female
  Weight: 124.72 kg

DRUGS (6)
  1. DICLOFENAC SODIUM [Concomitant]
     Dosage: 75 MG, UNK
     Dates: start: 20091130
  2. YASMIN [Suspect]
     Indication: CONTRACEPTION
  3. CYCLOBENZAPRINE [Concomitant]
     Dosage: 10 MG, UNK
     Dates: start: 20091130
  4. YASMIN [Suspect]
     Indication: DYSMENORRHOEA
  5. YASMIN [Suspect]
     Indication: MENORRHAGIA
     Dosage: UNK
     Route: 048
     Dates: start: 20031101, end: 20080601
  6. DROSPIRENONE AND ETHINYL ESTRADIOL [Suspect]
     Indication: CONTRACEPTION
     Dosage: UNK
     Route: 048
     Dates: start: 20080701, end: 20091201

REACTIONS (10)
  - ANHEDONIA [None]
  - LOSS OF CONSCIOUSNESS [None]
  - FEAR [None]
  - PULMONARY EMBOLISM [None]
  - DEEP VEIN THROMBOSIS [None]
  - INJURY [None]
  - PAIN [None]
  - DYSPNOEA [None]
  - ANXIETY [None]
  - PSYCHOLOGICAL TRAUMA [None]
